FAERS Safety Report 17443815 (Version 1)
Quarter: 2020Q1

REPORT INFORMATION
  Report Type: Spontaneous
  Country: PT (occurrence: PT)
  Receive Date: 20200221
  Receipt Date: 20200221
  Transmission Date: 20200409
  Serious: Yes (Death, Other)
  Sender: FDA-Public Use
  Company Number: PT-ROCHE-2552250

PATIENT
  Age: 36 Year
  Sex: Female

DRUGS (2)
  1. HEPARIN [Concomitant]
     Active Substance: HEPARIN SODIUM
  2. METALYSE [Suspect]
     Active Substance: TENECTEPLASE
     Indication: FIBRINOLYSIS
     Route: 065

REACTIONS (10)
  - Hypoxic-ischaemic encephalopathy [Fatal]
  - Mediastinal haemorrhage [Fatal]
  - Foetal death [Unknown]
  - Haematoma [Not Recovered/Not Resolved]
  - Retroperitoneal haematoma [Fatal]
  - Coma [Fatal]
  - Haemothorax [Not Recovered/Not Resolved]
  - Vaginal haemorrhage [Fatal]
  - Pericardial haemorrhage [Not Recovered/Not Resolved]
  - Maternal exposure during pregnancy [Unknown]
